FAERS Safety Report 5217945-5 (Version None)
Quarter: 2007Q1

REPORT INFORMATION
  Report Type: 
  Country: None (occurrence: None)
  Receive Date: 20061130
  Receipt Date: 20060710
  Transmission Date: 20070707
  Serious: Yes (Hospitalization, Other)
  Sender: FDA-Public Use
  Company Number: US200607000428

PATIENT
  Age: 24 Year
  Sex: Female
  Weight: 79.4 kg

DRUGS (4)
  1. OLANZAPINE [Suspect]
     Indication: INSOMNIA
     Dosage: DAILY (1/D), ORAL
     Route: 048
     Dates: start: 20021001, end: 20030301
  2. OLANZAPINE [Suspect]
     Indication: INSOMNIA
     Dosage: DAILY (1/D), ORAL
     Route: 048
     Dates: start: 20030901, end: 20031101
  3. ABILIFY [Concomitant]
  4. SEROQUEL [Concomitant]

REACTIONS (10)
  - CONVULSION [None]
  - EAR INFECTION [None]
  - HALLUCINATION [None]
  - HYPERSOMNIA [None]
  - INCREASED APPETITE [None]
  - NECK PAIN [None]
  - SOMNOLENCE [None]
  - SUICIDAL IDEATION [None]
  - TINNITUS [None]
  - WEIGHT INCREASED [None]
